FAERS Safety Report 8296134-4 (Version None)
Quarter: 2012Q2

REPORT INFORMATION
  Report Type: 
  Country: None (occurrence: None)
  Receive Date: 20120418
  Receipt Date: 20120412
  Transmission Date: 20120825
  Serious: Yes (Hospitalization)
  Sender: FDA-Public Use
  Company Number: JP-GLAXOSMITHKLINE-B0763913A

PATIENT
  Sex: Female

DRUGS (9)
  1. DIAZEPAM [Concomitant]
     Dosage: 5MG PER DAY
     Route: 048
     Dates: start: 20111017
  2. LENDORMIN [Concomitant]
     Dosage: .5MG PER DAY
     Route: 048
     Dates: start: 20111017
  3. DESYREL [Concomitant]
     Dosage: 50MG PER DAY
     Route: 048
     Dates: start: 20111020
  4. RISPERDAL [Concomitant]
     Dosage: 2MG PER DAY
     Route: 048
     Dates: start: 20111017
  5. TASMOLIN [Concomitant]
     Dosage: 2MG PER DAY
     Route: 048
     Dates: start: 20111017
  6. LAMICTAL [Suspect]
     Indication: PRODUCT USED FOR UNKNOWN INDICATION
     Dosage: 25MG PER DAY
     Route: 048
     Dates: start: 20111017, end: 20111019
  7. LEVOFLOXACIN [Concomitant]
     Route: 065
  8. LAMICTAL [Suspect]
     Dosage: 100MG PER DAY
     Route: 048
     Dates: start: 20111020, end: 20111111
  9. NITRAZEPAM [Concomitant]
     Dosage: 10MG PER DAY
     Route: 048
     Dates: start: 20111017

REACTIONS (15)
  - DRUG RASH WITH EOSINOPHILIA AND SYSTEMIC SYMPTOMS [None]
  - BLOOD LACTATE DEHYDROGENASE INCREASED [None]
  - GAMMA-GLUTAMYLTRANSFERASE INCREASED [None]
  - C-REACTIVE PROTEIN INCREASED [None]
  - INSOMNIA [None]
  - PYREXIA [None]
  - ALOPECIA [None]
  - ASPARTATE AMINOTRANSFERASE INCREASED [None]
  - SKIN DISORDER [None]
  - RASH GENERALISED [None]
  - WHITE BLOOD CELL COUNT INCREASED [None]
  - DRUG ERUPTION [None]
  - SCAR [None]
  - ALANINE AMINOTRANSFERASE INCREASED [None]
  - FEELING ABNORMAL [None]
